FAERS Safety Report 7726347-9 (Version None)
Quarter: 2011Q3

REPORT INFORMATION
  Report Type: 
  Country: None (occurrence: None)
  Receive Date: 20110902
  Receipt Date: 20110818
  Transmission Date: 20111222
  Serious: Yes (Other)
  Sender: FDA-Public Use
  Company Number: US-JNJFOC-20110809205

PATIENT
  Sex: Female

DRUGS (6)
  1. BENADRYL [Suspect]
     Route: 042
  2. ASPIRIN [Concomitant]
     Indication: PRODUCT USED FOR UNKNOWN INDICATION
     Route: 048
  3. BENADRYL [Suspect]
     Indication: PRURITUS GENERALISED
     Route: 042
     Dates: start: 20100101
  4. PAROXETINE HCL [Concomitant]
     Indication: DEPRESSION
     Route: 048
  5. CARBAMAZEPINE [Suspect]
     Indication: PRODUCT USED FOR UNKNOWN INDICATION
     Route: 042
     Dates: start: 20100101
  6. VITAMIN TAB [Concomitant]
     Indication: PRODUCT USED FOR UNKNOWN INDICATION
     Route: 065

REACTIONS (9)
  - EATING DISORDER [None]
  - SWOLLEN TONGUE [None]
  - EYE SWELLING [None]
  - DRUG INEFFECTIVE [None]
  - SWELLING [None]
  - NEUROPATHY PERIPHERAL [None]
  - PHARYNGEAL OEDEMA [None]
  - SKIN DISCOLOURATION [None]
  - PRURITUS GENERALISED [None]
